FAERS Safety Report 8934935 (Version 10)
Quarter: 2014Q1

REPORT INFORMATION
  Report Type: Report from Study
  Country: DE (occurrence: DE)
  Receive Date: 20121129
  Receipt Date: 20140317
  Transmission Date: 20141002
  Serious: Yes (Hospitalization)
  Sender: FDA-Public Use
  Company Number: DE-ROCHE-1159105

PATIENT
  Age: 60 Year
  Sex: Male
  Weight: 61.7 kg

DRUGS (9)
  1. VISMODEGIB [Suspect]
     Indication: HEAD AND NECK CANCER
     Dosage: RECENT DOSE PRIOR TO AE: 08/NOV/2012.
     Route: 048
     Dates: start: 20120507, end: 20121108
  2. VISMODEGIB [Suspect]
     Route: 048
     Dates: end: 20121115
  3. SIMVASTATIN [Concomitant]
     Route: 065
  4. SPIRIVA [Concomitant]
     Indication: CHRONIC OBSTRUCTIVE PULMONARY DISEASE
     Dosage: UNIT REPORTED AS MG
     Route: 065
     Dates: start: 20121128
  5. SPIRIVA [Concomitant]
     Route: 065
     Dates: start: 201112
  6. TORADOL [Concomitant]
     Indication: CHRONIC OBSTRUCTIVE PULMONARY DISEASE
     Route: 065
     Dates: start: 20121128
  7. SULTANOL [Concomitant]
     Indication: CHRONIC OBSTRUCTIVE PULMONARY DISEASE
     Route: 065
     Dates: start: 20121128
  8. SULTANOL [Concomitant]
     Dosage: 2 PUFFS AS NEEDED
     Route: 065
     Dates: start: 201111
  9. FORADIL [Concomitant]
     Indication: CHRONIC OBSTRUCTIVE PULMONARY DISEASE
     Route: 065
     Dates: start: 201112

REACTIONS (1)
  - Pneumonia [Recovered/Resolved]
